FAERS Safety Report 22037783 (Version 1)
Quarter: 2023Q1

REPORT INFORMATION
  Report Type: Spontaneous
  Country: FR (occurrence: FR)
  Receive Date: 20230227
  Receipt Date: 20230227
  Transmission Date: 20230417
  Serious: Yes (Hospitalization, Other)
  Sender: FDA-Public Use
  Company Number: FR-EMA-DD-20180606-dkevhprod-131008

PATIENT
  Age: 39 Year
  Sex: Female

DRUGS (4)
  1. ACETAMINOPHEN [Suspect]
     Active Substance: ACETAMINOPHEN
     Indication: Prophylaxis
     Dosage: 1 GRAM, TOTAL
     Route: 042
  2. KETOPROFEN [Suspect]
     Active Substance: KETOPROFEN
     Indication: General anaesthesia
     Dosage: 100 MILLIGRAM, TOTAL
     Route: 042
  3. MORPHINE [Suspect]
     Active Substance: MORPHINE
     Indication: Postoperative analgesia
     Dosage: 4 MILLIGRAM, 4 MG TOTLA
     Route: 042
  4. SUFENTANIL CITRATE [Suspect]
     Active Substance: SUFENTANIL CITRATE
     Indication: General anaesthesia
     Dosage: 15 MILLIGRAM (15 MICROG TOTAL)
     Route: 042

REACTIONS (4)
  - Intestinal pseudo-obstruction [Recovered/Resolved]
  - Exposure during pregnancy [Recovered/Resolved]
  - Pain [Unknown]
  - Hyperthermia [Unknown]
